FAERS Safety Report 8960978 (Version 1)
Quarter: 2012Q4

REPORT INFORMATION
  Report Type: 
  Country: US (occurrence: US)
  Receive Date: 20121212
  Receipt Date: 20121212
  Transmission Date: 20130627
  Serious: Yes (Congenital Anomaly, Other)
  Sender: FDA-Public Use
  Company Number: US-ACTELION-A-US2012-75678

PATIENT
  Age: 4 Month

DRUGS (5)
  1. TRACLEER [Suspect]
     Indication: MATERNAL EXPOSURE DURING PREGNANCY
     Dosage: 62.5 mg, bid
     Route: 064
     Dates: end: 20120207
  2. PLAQUENIL [Concomitant]
  3. REVATIO [Concomitant]
  4. IMURAN [Concomitant]
  5. PREDNISONE [Concomitant]

REACTIONS (2)
  - Cleft palate [Unknown]
  - Maternal exposure during pregnancy [Unknown]
